FAERS Safety Report 25155470 (Version 3)
Quarter: 2025Q4

REPORT INFORMATION
  Report Type: Spontaneous
  Country: CA (occurrence: CA)
  Receive Date: 20250403
  Receipt Date: 20251029
  Transmission Date: 20260118
  Serious: Yes (Hospitalization, Other)
  Sender: PFIZER
  Company Number: CA-PFIZER INC-202500067799

PATIENT
  Age: 65 Year
  Sex: Male

DRUGS (8)
  1. RUXIENCE [Suspect]
     Active Substance: RITUXIMAB-PVVR
     Indication: Retroperitoneal fibrosis
     Dosage: 1000 MG, EVERY 6 MONTHS, DAY 1 AND DAY 14
     Route: 042
     Dates: start: 20241016
  2. RUXIENCE [Suspect]
     Active Substance: RITUXIMAB-PVVR
     Indication: Immunoglobulin G4 related disease
     Dosage: 1000 MG, DAY 1 (DAY 1 AND DAY 14)
     Route: 042
     Dates: start: 20250403
  3. RUXIENCE [Suspect]
     Active Substance: RITUXIMAB-PVVR
     Dosage: 1000 MG, EVERY 6 MONTH,(DAY 1 AND DAY 14)
     Route: 042
     Dates: start: 20251006
  4. RUXIENCE [Suspect]
     Active Substance: RITUXIMAB-PVVR
     Dosage: 1000 MG, DAY 15
     Route: 042
     Dates: start: 20251021
  5. ACETAMINOPHEN [Concomitant]
     Active Substance: ACETAMINOPHEN
     Indication: Premedication
     Dosage: 650 MG
     Route: 048
     Dates: start: 20250403, end: 20250403
  6. DIPHENHYDRAMINE [Concomitant]
     Active Substance: DIPHENHYDRAMINE
     Indication: Premedication
     Dosage: 50 MG
     Route: 048
     Dates: start: 20250403, end: 20250403
  7. METHOTREXATE [Concomitant]
     Active Substance: METHOTREXATE
     Dosage: 1 DF
  8. METHYLPREDNISOLONE [Concomitant]
     Active Substance: METHYLPREDNISOLONE
     Indication: Premedication
     Dosage: 20 MG
     Route: 042
     Dates: start: 20250403, end: 20250403

REACTIONS (4)
  - Angina unstable [Unknown]
  - Blood pressure increased [Unknown]
  - Blood pressure decreased [Recovered/Resolved]
  - Bone pain [Recovered/Resolved]

NARRATIVE: CASE EVENT DATE: 20250101
